FAERS Safety Report 15394113 (Version 1)
Quarter: 2018Q4

REPORT INFORMATION
  Report Type: Spontaneous
  Country: DE (occurrence: DE)
  Receive Date: 20180918
  Receipt Date: 20180918
  Transmission Date: 20190204
  Serious: Yes (Life-Threatening)
  Sender: FDA-Public Use
  Company Number: DE-DRREDDYS-GER/GER/18/0103976

PATIENT
  Age: 17 Year
  Sex: Female
  Weight: 57 kg

DRUGS (3)
  1. LAMOTRIGINE. [Suspect]
     Active Substance: LAMOTRIGINE
     Indication: IDIOPATHIC GENERALISED EPILEPSY
     Dosage: DAILY DOSE: 250 MG MILLGRAM(S) EVERY DAYS
     Route: 048
     Dates: start: 201610
  2. DESOGESTREL ARISTO [Suspect]
     Active Substance: DESOGESTREL
     Indication: CONTRACEPTION
     Dosage: DAILY DOSE: 75 MCG MICROGRAM(S) EVERY DAYS
     Route: 048
     Dates: start: 201703
  3. BUCCOLAM [Concomitant]
     Active Substance: MIDAZOLAM HYDROCHLORIDE
     Indication: EMERGENCY CARE
     Route: 048
     Dates: start: 20170309, end: 20170309

REACTIONS (1)
  - Seizure [Recovered/Resolved]

NARRATIVE: CASE EVENT DATE: 20170309
